FAERS Safety Report 7966113-2 (Version None)
Quarter: 2011Q4

REPORT INFORMATION
  Report Type: 
  Country: None (occurrence: None)
  Receive Date: 20111208
  Receipt Date: 20111205
  Transmission Date: 20120403
  Serious: Yes (Other)
  Sender: FDA-Public Use
  Company Number: GXKR2011DE003532

PATIENT
  Sex: Male

DRUGS (4)
  1. ALCOHOL [Interacting]
     Route: 048
  2. ACETYLSALICYLIC ACID SRT [Concomitant]
     Route: 048
  3. SIMVASTATIN [Suspect]
     Dosage: UNK UKN, UNK
     Route: 048
  4. OLANZAPINE [Concomitant]
     Route: 048

REACTIONS (1)
  - PSYCHOTIC DISORDER [None]
